FAERS Safety Report 9829808 (Version 1)
Quarter: 2014Q1

REPORT INFORMATION
  Report Type: Spontaneous
  Country: US (occurrence: US)
  Receive Date: 20140120
  Receipt Date: 20140120
  Transmission Date: 20141002
  Serious: No
  Sender: FDA-Public Use
  Company Number: US-009507513-1401USA007365

PATIENT
  Age: 81 Year
  Sex: Female

DRUGS (3)
  1. JANUVIA [Suspect]
     Indication: TYPE 2 DIABETES MELLITUS
     Dosage: 100 MG, QD
     Route: 048
     Dates: start: 20140101
  2. WARFARIN SODIUM [Concomitant]
  3. PREDNISONE [Concomitant]

REACTIONS (1)
  - Subcutaneous abscess [Not Recovered/Not Resolved]
